FAERS Safety Report 10356398 (Version 1)
Quarter: 2014Q3

REPORT INFORMATION
  Report Type: Spontaneous
  Country: US (occurrence: US)
  Receive Date: 20140801
  Receipt Date: 20140801
  Transmission Date: 20150326
  Serious: Yes (Other)
  Sender: FDA-Public Use
  Company Number: US-BAYER-2014-112712

PATIENT
  Age: 27 Year
  Sex: Female

DRUGS (1)
  1. BEYAZ [Suspect]
     Active Substance: DROSPIRENONE\ETHINYL ESTRADIOL\LEVOMEFOLATE CALCIUM
     Route: 048

REACTIONS (4)
  - Injury [None]
  - Emotional distress [None]
  - Pulmonary embolism [None]
  - Pulmonary hypertension [None]

NARRATIVE: CASE EVENT DATE: 20121007
